FAERS Safety Report 26210138 (Version 1)
Quarter: 2025Q4

REPORT INFORMATION
  Report Type: Spontaneous
  Country: GB (occurrence: None)
  Receive Date: 20251229
  Receipt Date: 20251229
  Transmission Date: 20260118
  Serious: Yes (Other)
  Sender: B. BRAUN MEDICAL INC.
  Company Number: None

PATIENT
  Age: 38 Year
  Sex: Male
  Weight: 93 kg

DRUGS (2)
  1. ACETAMINOPHEN [Suspect]
     Active Substance: ACETAMINOPHEN
  2. LACTULOSE [Concomitant]
     Active Substance: LACTULOSE

REACTIONS (1)
  - Generalised oedema [Recovered/Resolved]
